FAERS Safety Report 7387448-0 (Version None)
Quarter: 2011Q1

REPORT INFORMATION
  Report Type: 
  Country: None (occurrence: None)
  Receive Date: 20110331
  Receipt Date: 20110321
  Transmission Date: 20110831
  Serious: Yes (Other)
  Sender: FDA-Public Use
  Company Number: US-ELI_LILLY_AND_COMPANY-US201101003621

PATIENT
  Sex: Female

DRUGS (2)
  1. VICTOZA [Concomitant]
  2. BYETTA [Suspect]

REACTIONS (2)
  - BURNS THIRD DEGREE [None]
  - GASTROINTESTINAL STOMA COMPLICATION [None]
